FAERS Safety Report 7866762-6 (Version None)
Quarter: 2011Q4

REPORT INFORMATION
  Report Type: 
  Country: None (occurrence: None)
  Receive Date: 20111028
  Receipt Date: 20110815
  Transmission Date: 20120403
  Serious: No
  Sender: FDA-Public Use
  Company Number: US-GLAXOSMITHKLINE-A0941087A

PATIENT
  Age: 61 Year
  Sex: Female

DRUGS (4)
  1. FELODIPINE [Concomitant]
  2. EPIPEN [Concomitant]
  3. TRIAMTERENE AND HYDROCHLOROTHIAZIDE [Concomitant]
  4. ADVAIR DISKUS 100/50 [Suspect]
     Indication: ASTHMA
     Dosage: 1PUFF PER DAY
     Route: 055

REACTIONS (4)
  - APHTHOUS STOMATITIS [None]
  - ORAL MUCOSAL ERYTHEMA [None]
  - LIP SWELLING [None]
  - NASAL OEDEMA [None]
